FAERS Safety Report 16365256 (Version 1)
Quarter: 2019Q2

REPORT INFORMATION
  Report Type: Spontaneous
  Country: US (occurrence: US)
  Receive Date: 20190529
  Receipt Date: 20190529
  Transmission Date: 20190711
  Serious: No
  Sender: FDA-Public Use
  Company Number: US-BIOGEN-2019BI00717886

PATIENT
  Age: 28 Year
  Sex: Female
  Weight: 90.8 kg

DRUGS (2)
  1. TECFIDERA [Suspect]
     Active Substance: DIMETHYL FUMARATE
     Route: 048
     Dates: start: 20190523
  2. TECFIDERA [Suspect]
     Active Substance: DIMETHYL FUMARATE
     Indication: MULTIPLE SCLEROSIS
     Dosage: STARTING DOSE
     Route: 048
     Dates: start: 20190321

REACTIONS (4)
  - Pruritus [Recovered/Resolved]
  - Gastrointestinal disorder [Unknown]
  - Flushing [Unknown]
  - Product dose omission [Unknown]

NARRATIVE: CASE EVENT DATE: 20190321
